FAERS Safety Report 7602369-3 (Version None)
Quarter: 2011Q3

REPORT INFORMATION
  Report Type: 
  Country: None (occurrence: None)
  Receive Date: 20110712
  Receipt Date: 20110630
  Transmission Date: 20111222
  Serious: No
  Sender: FDA-Public Use
  Company Number: US-BIOGENIDEC-2011BI010758

PATIENT
  Sex: Male

DRUGS (2)
  1. TYSABRI [Suspect]
     Indication: MULTIPLE SCLEROSIS
     Route: 042
     Dates: start: 20101109, end: 20110510
  2. TYSABRI [Suspect]
     Route: 042
     Dates: start: 20070724, end: 20080705

REACTIONS (3)
  - DRUG INEFFECTIVE [None]
  - PRIMARY PROGRESSIVE MULTIPLE SCLEROSIS [None]
  - MALAISE [None]
